FAERS Safety Report 9668651 (Version 5)
Quarter: 2014Q2

REPORT INFORMATION
  Report Type: Spontaneous
  Country: JP (occurrence: JP)
  Receive Date: 20131105
  Receipt Date: 20140502
  Transmission Date: 20141212
  Serious: Yes (Other)
  Sender: FDA-Public Use
  Company Number: JP-009507513-1311JPN000583

PATIENT
  Age: 88 Year
  Sex: Female

DRUGS (6)
  1. DIAZOXIDE CAPSULES 25 MG ^MSD^ [Suspect]
     Indication: HYPOGLYCAEMIA
     Dosage: 25 MG, QD
     Route: 048
     Dates: start: 20130327, end: 20130415
  2. DIAZOXIDE CAPSULES 25 MG ^MSD^ [Suspect]
     Indication: INSULINOMA
     Dosage: 50 MG, QD
     Route: 048
     Dates: start: 20130327, end: 20130410
  3. DIAZOXIDE CAPSULES 25 MG ^MSD^ [Suspect]
     Dosage: 25 MG, QD
     Route: 048
     Dates: start: 20130411, end: 20130415
  4. DIAZOXIDE CAPSULES 25 MG ^MSD^ [Suspect]
     Dosage: 25 MG, QD
     Route: 048
     Dates: start: 20130502
  5. DIAZOXIDE CAPSULES 25 MG ^MSD^ [Suspect]
     Dosage: 50 MG, QD
     Route: 048
     Dates: start: 20130507
  6. DIAZOXIDE CAPSULES 25 MG ^MSD^ [Suspect]
     Dosage: 75 MG, QD
     Route: 048
     Dates: start: 20130510

REACTIONS (4)
  - Hyperglycaemia [Recovered/Resolved]
  - Urinary tract infection [Unknown]
  - Depressed level of consciousness [Unknown]
  - Decreased appetite [Unknown]
